FAERS Safety Report 6189977-4 (Version None)
Quarter: 2009Q2

REPORT INFORMATION
  Report Type: 
  Country: None (occurrence: None)
  Receive Date: 20090514
  Receipt Date: 20090505
  Transmission Date: 20091009
  Serious: Yes (Other)
  Sender: FDA-Public Use
  Company Number: PHHY2009AU05635

PATIENT
  Sex: Male

DRUGS (3)
  1. CLOZARIL [Suspect]
     Indication: PSYCHOTIC DISORDER
     Dosage: 350 MG/DAY
     Route: 048
     Dates: start: 20020724, end: 20070201
  2. CLOZARIL [Suspect]
     Dosage: 350 MG DAILY
     Route: 048
     Dates: start: 20070201
  3. SUBOXONE [Concomitant]

REACTIONS (9)
  - ANXIETY [None]
  - BENIGN CARDIAC NEOPLASM [None]
  - CARDIAC MYXOMA [None]
  - CARDIAC NEOPLASM UNSPECIFIED [None]
  - CLAUSTROPHOBIA [None]
  - ECHOCARDIOGRAM ABNORMAL [None]
  - HEART RATE INCREASED [None]
  - HYPERTENSION [None]
  - LIPOMA [None]
